FAERS Safety Report 23247461 (Version 1)
Quarter: 2023Q4

REPORT INFORMATION
  Report Type: Spontaneous
  Country: US (occurrence: US)
  Receive Date: 20231130
  Receipt Date: 20231130
  Transmission Date: 20240110
  Serious: Yes (Other)
  Sender: FDA-Public Use
  Company Number: US-APELLIS PHARMACEUTICALS-APL-2023-003135

PATIENT
  Age: 89 Year
  Sex: Female

DRUGS (15)
  1. SYFOVRE [Suspect]
     Active Substance: PEGCETACOPLAN
     Indication: Dry age-related macular degeneration
     Dosage: LEFT EYE
     Dates: start: 20230623, end: 20230623
  2. SYFOVRE [Suspect]
     Active Substance: PEGCETACOPLAN
     Indication: Retinal degeneration
     Dosage: RIGHT EYE
     Dates: start: 20230630, end: 20230630
  3. SYFOVRE [Suspect]
     Active Substance: PEGCETACOPLAN
     Dosage: LEFT EYE
     Dates: start: 20230728, end: 20230728
  4. SYFOVRE [Suspect]
     Active Substance: PEGCETACOPLAN
     Dosage: RIGHT EYE
     Dates: start: 20230818, end: 20230818
  5. SYFOVRE [Suspect]
     Active Substance: PEGCETACOPLAN
     Dosage: LEFT EYE
     Dates: start: 20230915, end: 20230915
  6. SYFOVRE [Suspect]
     Active Substance: PEGCETACOPLAN
     Dosage: RIGHT EYE
     Dates: start: 20230929, end: 20230929
  7. LUTEIN\MINERALS\VITAMINS\ZEAXANTHIN [Concomitant]
     Active Substance: LUTEIN\MINERALS\VITAMINS\ZEAXANTHIN
     Indication: Product used for unknown indication
     Dosage: 1 TABLET BID
  8. DUREZOL [Concomitant]
     Active Substance: DIFLUPREDNATE
     Indication: Product used for unknown indication
     Dosage: 1 GTT DROPS Q2H OD
  9. VIGAMOX [Concomitant]
     Active Substance: MOXIFLOXACIN HYDROCHLORIDE
     Indication: Product used for unknown indication
     Dosage: 1 GTT Q2H OD
  10. ATROPINE SULFATE [Concomitant]
     Active Substance: ATROPINE SULFATE
     Indication: Product used for unknown indication
     Dosage: 1 GTT BID OD
  11. PREDNISONE [Concomitant]
     Active Substance: PREDNISONE
     Indication: Product used for unknown indication
     Dosage: 20 MILLIGRAM, 3 TABLET QD
     Route: 048
  12. LISINOPRIL [Concomitant]
     Active Substance: LISINOPRIL
     Indication: Product used for unknown indication
     Dosage: 10 MILLIGRAM
     Route: 048
  13. SIMVASTATIN [Concomitant]
     Active Substance: SIMVASTATIN
     Indication: Product used for unknown indication
  14. VALIUM [Concomitant]
     Active Substance: DIAZEPAM
     Indication: Product used for unknown indication
     Dosage: 2 MILLIGRAM, PRN
     Route: 048
  15. FOSAMAX [Concomitant]
     Active Substance: ALENDRONATE SODIUM
     Indication: Product used for unknown indication
     Dosage: 5 MILLIGRAM
     Route: 048

REACTIONS (7)
  - Endophthalmitis [Recovering/Resolving]
  - Hyphaema [Unknown]
  - Hypopyon [Unknown]
  - Visual acuity reduced [Unknown]
  - Visual acuity reduced [Unknown]
  - Vision blurred [Unknown]
  - Vitreous floaters [Unknown]

NARRATIVE: CASE EVENT DATE: 20230728
